FAERS Safety Report 4841748-4 (Version None)
Quarter: 2005Q4

REPORT INFORMATION
  Report Type: 
  Country: None (occurrence: None)
  Receive Date: 20051130
  Receipt Date: 20051118
  Transmission Date: 20060501
  Serious: Yes (Hospitalization, Other)
  Sender: FDA-Public Use
  Company Number: DE-JNJFOC-20051105169

PATIENT
  Sex: Male
  Weight: 110 kg

DRUGS (2)
  1. TOPIRAMATE [Suspect]
     Indication: MIGRAINE PROPHYLAXIS
     Route: 048
  2. CIPRALEX [Concomitant]
     Indication: ANTIDEPRESSANT THERAPY
     Route: 065

REACTIONS (4)
  - EMOTIONAL DISORDER [None]
  - EXCITABILITY [None]
  - HOSPITALISATION [None]
  - HYPERTENSION [None]
